FAERS Safety Report 8338215-2 (Version None)
Quarter: 2012Q2

REPORT INFORMATION
  Report Type: 
  Country: None (occurrence: None)
  Receive Date: 20120504
  Receipt Date: 20120425
  Transmission Date: 20120825
  Serious: Yes (Other)
  Sender: FDA-Public Use
  Company Number: US-ASTRAZENECA-2012SE27281

PATIENT
  Age: 64 Year
  Sex: Female

DRUGS (19)
  1. CELEBREX [Concomitant]
  2. FLUTICASONE FUROATE [Concomitant]
  3. SINGULAIR [Concomitant]
  4. CRESTOR [Suspect]
     Route: 048
  5. PROAIR HFA [Concomitant]
     Dosage: TWO PUFFS TWO TIMES A DAY
  6. AMBIEN [Concomitant]
  7. DUONEB [Concomitant]
     Dosage: AS NEEDED FOR NEBULIZER
  8. ADVAIR DISKUS 100/50 [Concomitant]
     Dosage: 500/50 TWO TIMES A DAY
  9. THEOPHYLLINE [Concomitant]
  10. PANTOPRAZOLE [Concomitant]
  11. FUROSEMIDE [Concomitant]
  12. ASPIRIN [Concomitant]
  13. QUINAPRIL [Concomitant]
  14. PAXIL [Concomitant]
  15. XANAX [Concomitant]
  16. KLOR-CON [Concomitant]
  17. VERAPAMIL [Concomitant]
  18. CYCLOBENZAPRINE HCL [Concomitant]
  19. METFORMIN HCL [Concomitant]

REACTIONS (1)
  - ACQUIRED IMMUNODEFICIENCY SYNDROME [None]
